FAERS Safety Report 9970153 (Version 1)
Quarter: 2014Q1

REPORT INFORMATION
  Report Type: Spontaneous
  Country: CH (occurrence: None)
  Receive Date: 20140304
  Receipt Date: 20140304
  Transmission Date: 20141002
  Serious: Yes (Other)
  Sender: FDA-Public Use
  Company Number: SYM-2014-17802

PATIENT
  Age: 15 Year
  Sex: Male

DRUGS (13)
  1. FLUOROURACIL (FLUOROURACIL) [Suspect]
     Indication: METASTASES TO LUNG
     Dates: start: 201105
  2. FLUOROURACIL (FLUOROURACIL) [Suspect]
     Indication: PANCREATIC CARCINOMA
     Dates: start: 201105
  3. FLUOROURACIL (FLUOROURACIL) [Suspect]
     Indication: PANCREATIC CARCINOMA
     Dates: start: 201105
  4. OXALIPLATIN (OXALIPLATIN) (OXALIPLATIN) [Suspect]
     Indication: METASTASES TO LUNG
     Dates: start: 201105
  5. OXALIPLATIN (OXALIPLATIN) (OXALIPLATIN) [Suspect]
     Indication: PANCREATIC CARCINOMA
     Dates: start: 201105
  6. OXALIPLATIN (OXALIPLATIN) (OXALIPLATIN) [Suspect]
     Indication: PANCREATIC CARCINOMA
     Dates: start: 201105
  7. IRINOTECAN (IRINOTECAN) (IRINOTECAN) [Suspect]
     Indication: METASTASES TO LUNG
     Dates: start: 201105
  8. IRINOTECAN (IRINOTECAN) (IRINOTECAN) [Suspect]
     Indication: PANCREATIC CARCINOMA
     Dates: start: 201105
  9. IRINOTECAN (IRINOTECAN) (IRINOTECAN) [Suspect]
     Indication: PANCREATIC CARCINOMA
     Dates: start: 201105
  10. LEUCOVORIN (FOLINIC ACID) (FOLINIC ACID) [Suspect]
     Indication: METASTASES TO LUNG
     Dates: start: 201105
  11. LEUCOVORIN (FOLINIC ACID) (FOLINIC ACID) [Suspect]
     Indication: PANCREATIC CARCINOMA
     Dates: start: 201105
  12. LEUCOVORIN (FOLINIC ACID) (FOLINIC ACID) [Suspect]
     Indication: PANCREATIC CARCINOMA
     Dates: start: 201105
  13. REVEROLIMUS [Concomitant]

REACTIONS (3)
  - Neutropenia [None]
  - Off label use [None]
  - Thrombocytopenia [None]
